FAERS Safety Report 9008582 (Version 1)
Quarter: 2013Q1

REPORT INFORMATION
  Report Type: Report from Study
  Country: US (occurrence: US)
  Receive Date: 20130111
  Receipt Date: 20130111
  Transmission Date: 20140127
  Serious: Yes (Hospitalization, Other)
  Sender: FDA-Public Use
  Company Number: US-PFIZER INC-2013007558

PATIENT
  Age: 45 Year
  Sex: Female
  Weight: 131.5 kg

DRUGS (13)
  1. ZOSYN [Suspect]
     Indication: PNEUMONITIS
     Dosage: 13.5 MG, DAILY DOSE
     Dates: start: 20090523, end: 20090524
  2. METHOTREXATE SODIUM [Concomitant]
     Indication: RHEUMATOID ARTHRITIS
  3. IBUPROFEN [Concomitant]
     Dosage: 800 MG, DAILY
     Dates: start: 20080131, end: 20090519
  4. LASIX [Concomitant]
     Dosage: 80 MG, DAILY
     Dates: start: 20080805
  5. LASIX [Concomitant]
     Dosage: 20 MG, DAILY
     Route: 042
     Dates: start: 20090520, end: 20090523
  6. CYMBALTA [Concomitant]
     Dosage: UNK
     Dates: start: 20080105
  7. CENTRUM SILVER [Concomitant]
     Dosage: 1 DF, DAILY
     Dates: start: 20080805
  8. CALTRATE [Concomitant]
     Dosage: 600 MG, DAILY
     Dates: start: 20080805
  9. TRAMADOL [Concomitant]
     Dosage: 50 MG, DAILY
     Dates: start: 20071128
  10. GABAPENTIN [Concomitant]
     Dosage: 600 MG, DAILY
     Dates: start: 20080131
  11. BENICAR [Concomitant]
     Dosage: TOTAL DAILY DOSE: 40/12.5 MG
     Dates: start: 20080131
  12. ORTHO TRI CYCLEN [Concomitant]
     Dosage: 1 DF, DAILY
     Dates: start: 200306
  13. BABY ASA [Concomitant]
     Dosage: UNK
     Dates: start: 20080131, end: 20090519

REACTIONS (1)
  - Renal failure acute [Recovered/Resolved]
